FAERS Safety Report 10090521 (Version 2)
Quarter: 2014Q2

REPORT INFORMATION
  Report Type: Spontaneous
  Country: US (occurrence: US)
  Receive Date: 20140421
  Receipt Date: 20140606
  Transmission Date: 20141212
  Serious: No
  Sender: FDA-Public Use
  Company Number: US-PFIZER INC-2014110292

PATIENT
  Age: 85 Year
  Sex: Female
  Weight: 63.49 kg

DRUGS (13)
  1. LYRICA [Suspect]
     Indication: NEUROPATHY PERIPHERAL
     Dosage: 75 MG, DAILY
     Route: 048
  2. LYRICA [Suspect]
     Dosage: 75 MG, 3X/DAY
     Route: 048
     Dates: start: 201401
  3. LYRICA [Suspect]
     Dosage: 75 MG, DAILY
     Route: 048
     Dates: start: 2014
  4. CARVEDILOL [Concomitant]
     Indication: CARDIAC DISORDER
     Dosage: 3.125 MG, 2X/DAY
  5. DIGOXIN [Concomitant]
     Indication: CARDIAC DISORDER
     Dosage: 250 UG, 2X/DAY
  6. FUROSEMIDE [Concomitant]
     Indication: DIURETIC THERAPY
     Dosage: 5 MG, DAILY
  7. LISINOPRIL [Concomitant]
     Indication: CARDIAC DISORDER
     Dosage: 25 MG, DAILY
  8. WARFARIN [Concomitant]
     Indication: ANTICOAGULANT THERAPY
     Dosage: UNK, DAILY
     Route: 048
  9. POTASSIUM [Concomitant]
     Dosage: 20 MG, DAILY
  10. SIMVASTATIN [Concomitant]
     Indication: CARDIAC DISORDER
     Dosage: 40 MG, DAILY
  11. CALCIUM [Concomitant]
     Dosage: 500 MG, 3X/DAY
  12. VITAMIN B3 [Concomitant]
     Dosage: 400 IU, DAILY
  13. ROPINIROLE [Concomitant]
     Indication: DYSKINESIA
     Dosage: 0.25 MG, AS NEEDED

REACTIONS (1)
  - Neuropathy peripheral [Unknown]
